FAERS Safety Report 5572795-5 (Version None)
Quarter: 2007Q4

REPORT INFORMATION
  Report Type: 
  Country: None (occurrence: None)
  Receive Date: 20071223
  Receipt Date: 20071214
  Transmission Date: 20080405
  Serious: Yes (Hospitalization)
  Sender: FDA-Public Use
  Company Number: PHBS2007DE21113

PATIENT
  Age: 65 Year
  Sex: Female

DRUGS (4)
  1. LOSARTAN POTASSIUM [Concomitant]
     Dosage: 50 MG/DAY
  2. AMIODARONE [Concomitant]
     Dosage: 200 MG/DAY
  3. ASPIRIN [Concomitant]
     Dosage: 100 MG/DAY
  4. HYDROCHLOROTHIAZIDE [Suspect]
     Dosage: 12.5 MG/DAY

REACTIONS (3)
  - BRUGADA SYNDROME [None]
  - ELECTROCARDIOGRAM ST SEGMENT ELEVATION [None]
  - VENTRICULAR TACHYCARDIA [None]
